FAERS Safety Report 17446151 (Version 1)
Quarter: 2020Q1

REPORT INFORMATION
  Report Type: Spontaneous
  Country: US (occurrence: US)
  Receive Date: 20200221
  Receipt Date: 20200221
  Transmission Date: 20200409
  Serious: No
  Sender: FDA-Public Use
  Company Number: US-SA-2020SA037934

PATIENT
  Age: 70 Year
  Sex: Female

DRUGS (2)
  1. DUPIXENT [Suspect]
     Active Substance: DUPILUMAB
     Indication: ASTHMA
     Dosage: 600 MG, 1X
     Dates: start: 20191025, end: 20191025
  2. DUPIXENT [Suspect]
     Active Substance: DUPILUMAB
     Indication: ECZEMA
     Dosage: 300 MG, QOW
     Route: 058
     Dates: start: 2019

REACTIONS (12)
  - Swelling of eyelid [Recovering/Resolving]
  - Injection site erythema [Recovered/Resolved]
  - Blepharitis [Recovering/Resolving]
  - Incorrect dose administered by device [Unknown]
  - Eyelid margin crusting [Recovering/Resolving]
  - Device leakage [Unknown]
  - Conjunctivitis [Recovering/Resolving]
  - Injection site swelling [Recovering/Resolving]
  - Device defective [Unknown]
  - Injection site pain [Unknown]
  - Insomnia [Unknown]
  - Eye irritation [Recovering/Resolving]

NARRATIVE: CASE EVENT DATE: 202002
